FAERS Safety Report 9382950 (Version 3)
Quarter: 2013Q3

REPORT INFORMATION
  Report Type: Spontaneous
  Country: US (occurrence: US)
  Receive Date: 20130703
  Receipt Date: 20130823
  Transmission Date: 20140515
  Serious: Yes (Hospitalization)
  Sender: FDA-Public Use
  Company Number: US-B.I. PHARMACEUTICALS,INC./RIDGEFIELD-2013-BI-18470BP

PATIENT
  Age: 77 Year
  Sex: Male
  Weight: 128 kg

DRUGS (4)
  1. COMBIVENT [Suspect]
     Indication: CHRONIC OBSTRUCTIVE PULMONARY DISEASE
     Dosage: STRENGTH: 18 MCG / 103 MCG; DAILY DOSE: 144 MCG/824 MCG
     Route: 055
     Dates: start: 2003, end: 201306
  2. COMBIVENT [Suspect]
     Indication: CHRONIC OBSTRUCTIVE PULMONARY DISEASE
     Dosage: STRENGTH: 20 MCG / 100 MCG; DAILY DOSE: 80 MCG/400 MCG
     Route: 055
     Dates: start: 201306
  3. LISINOPRIL [Concomitant]
     Indication: HYPERTENSION
     Route: 048
     Dates: start: 2003
  4. ALBUTEROL [Concomitant]
     Indication: CHRONIC OBSTRUCTIVE PULMONARY DISEASE
     Route: 055
     Dates: start: 2006

REACTIONS (5)
  - Myocardial infarction [Recovered/Resolved]
  - Memory impairment [Not Recovered/Not Resolved]
  - Arthralgia [Not Recovered/Not Resolved]
  - Dysphonia [Not Recovered/Not Resolved]
  - Product quality issue [Not Recovered/Not Resolved]
